FAERS Safety Report 7761989-6 (Version None)
Quarter: 2011Q3

REPORT INFORMATION
  Report Type: 
  Country: None (occurrence: None)
  Receive Date: 20110920
  Receipt Date: 20110910
  Transmission Date: 20111222
  Serious: Yes (Hospitalization)
  Sender: FDA-Public Use
  Company Number: DE-UCBSA-040643

PATIENT
  Age: 74 Year
  Sex: Male
  Weight: 91 kg

DRUGS (7)
  1. CIMZIA [Suspect]
     Indication: RHEUMATOID ARTHRITIS
     Dosage: 400 MG(NO. OF DOSES 3). NO. OF DOSES:30
     Route: 058
     Dates: start: 20100330, end: 20110630
  2. HYDROXYCHLOROQUINE SULFATE [Concomitant]
     Dosage: 1-0-1
     Dates: end: 20110601
  3. PREDNISONE [Concomitant]
     Dosage: 1-0-0
  4. FOLIC ACID [Concomitant]
     Dates: end: 20110601
  5. BIOFENAC [Concomitant]
     Dosage: 1-0-0
  6. METHOTREXATE [Concomitant]
     Dosage: 10  MG
     Dates: end: 20110601
  7. ERGOCALCIFEROL [Concomitant]
     Dosage: 1-0-0

REACTIONS (1)
  - LUNG DISORDER [None]
